FAERS Safety Report 17705763 (Version 1)
Quarter: 2020Q2

REPORT INFORMATION
  Report Type: Spontaneous
  Country: JP (occurrence: JP)
  Receive Date: 20200424
  Receipt Date: 20200424
  Transmission Date: 20200714
  Serious: Yes (Other)
  Sender: FDA-Public Use
  Company Number: JP-ABBVIE-20K-087-3377741-00

PATIENT
  Age: 70 Year
  Sex: Female

DRUGS (1)
  1. KALETRA [Suspect]
     Active Substance: LOPINAVIR\RITONAVIR
     Indication: CORONAVIRUS INFECTION
     Route: 048

REACTIONS (3)
  - Mechanical ventilation [Unknown]
  - Respiratory disorder [Unknown]
  - Off label use [Unknown]
